FAERS Safety Report 4598320-3 (Version None)
Quarter: 2005Q1

REPORT INFORMATION
  Report Type: 
  Country: None (occurrence: None)
  Receive Date: 20050302
  Receipt Date: 20050216
  Transmission Date: 20050727
  Serious: Yes (Hospitalization)
  Sender: FDA-Public Use
  Company Number: USA-2004-0016457

PATIENT
  Age: 51 Year
  Sex: Male

DRUGS (28)
  1. OXYCONTIN [Suspect]
     Indication: PAIN
     Dosage: 20 MG, Q12H,
     Dates: start: 20030806, end: 20030905
  2. OXYIR CAPSULES 5MG (OXYCODONE HDYROCHLORIDE, OXYCODONE HYDROCHLORIDE)I [Suspect]
     Indication: PAIN
     Dosage: 5 MG, Q4H,
     Dates: start: 20030901
  3. ARANESP [Suspect]
  4. KYTRIL [Concomitant]
     Dosage: 1 MG, INTRAVENOUS
     Route: 042
  5. PROGRAF [Suspect]
     Dosage: SEE IMAGE
     Dates: start: 20030103
  6. PROTONIX (PANTOPROZOLE) [Suspect]
     Dosage: 40 MG DAILY
     Dates: start: 20030910
  7. ASPIRIN [Suspect]
     Dosage: 81 MG DAILY
  8. GABAPENTIN [Suspect]
  9. MAGNESIUM (MAGNESIUM) [Suspect]
     Dosage: 400 MG
     Dates: start: 20030103
  10. DONEPEZIL HCL [Suspect]
  11. INDERAL [Suspect]
  12. DRONABINOL (DRONABINOL) [Suspect]
  13. MEGACE [Suspect]
  14. INSULIN (INSLIN) [Suspect]
  15. ALDACTONE [Suspect]
  16. AMBIEN [Suspect]
  17. CHLORPROMAZINE [Concomitant]
  18. GLIPIZIDE [Concomitant]
  19. PROCARDIA [Concomitant]
  20. PENTAMIDINE (PENTAMIDINE) [Concomitant]
  21. PERI-COLACE (SENNODIDE A+B, DOCUSATE SODIUM) [Concomitant]
  22. DULCOLAX [Concomitant]
  23. DEXAMETHASONE [Concomitant]
  24. CIS-PLATIUM (CISPLATIN) [Concomitant]
  25. ZOLOFT [Concomitant]
  26. LEUKINE [Concomitant]
  27. ADRIAMYCIN PFS [Concomitant]
  28. SENOKOT [Suspect]

REACTIONS (13)
  - ANAEMIA [None]
  - ASTHENIA [None]
  - BLOOD GLUCOSE INCREASED [None]
  - BLOOD SODIUM DECREASED [None]
  - CONFUSIONAL STATE [None]
  - CONTUSION [None]
  - EYE INJURY [None]
  - FALL [None]
  - FATIGUE [None]
  - MENTAL STATUS CHANGES [None]
  - NAUSEA [None]
  - PANCYTOPENIA [None]
  - VOMITING [None]
